FAERS Safety Report 8368446-7 (Version None)
Quarter: 2012Q2

REPORT INFORMATION
  Report Type: 
  Country: None (occurrence: None)
  Receive Date: 20120518
  Receipt Date: 20120509
  Transmission Date: 20120825
  Serious: Yes (Other)
  Sender: FDA-Public Use
  Company Number: AR-AMGEN-ARGSP2012029714

PATIENT
  Age: 62 Year
  Sex: Female

DRUGS (6)
  1. PRILOSEC [Concomitant]
     Dosage: UNK
  2. METHOTREXATE [Concomitant]
     Dosage: UNK
  3. AZARGA [Concomitant]
     Dosage: UNK
  4. ENBREL [Suspect]
     Indication: RHEUMATOID ARTHRITIS
     Dosage: UNK
     Dates: start: 20120508
  5. ENBREL [Suspect]
     Dosage: 50 MG, WEEKLY
     Route: 058
     Dates: start: 20060702, end: 20120101
  6. PROPYLENE GLYCOL [Concomitant]
     Dosage: UNK

REACTIONS (2)
  - ASTHENIA [None]
  - URINARY TRACT INFECTION [None]
